FAERS Safety Report 24737072 (Version 1)
Quarter: 2024Q4

REPORT INFORMATION
  Report Type: Spontaneous
  Country: US (occurrence: US)
  Receive Date: 20241216
  Receipt Date: 20241216
  Transmission Date: 20250114
  Serious: No
  Sender: ALVOGEN
  Company Number: US-ALVOGEN-2023092672

PATIENT
  Sex: Female

DRUGS (4)
  1. FENTANYL [Suspect]
     Active Substance: FENTANYL
     Indication: Pain management
     Dosage: PREVIOUS BOX
  2. FENTANYL [Suspect]
     Active Substance: FENTANYL
     Indication: Pain management
     Dosage: EXPIRATION: UU-AUG-2026?STRENGTH: 25MCG/HR
     Dates: start: 20231121
  3. FENTANYL [Suspect]
     Active Substance: FENTANYL
     Indication: Pain management
     Dosage: ANOTHER BOX OF FENTANYL PATCHES UNOPENED
  4. OXYCODONE [Concomitant]
     Active Substance: OXYCODONE
     Indication: Pain management
     Dosage: 10 MG?DESCRIBED PILL AS SMALL, ROUND PINK PILLS WITH NO IMPRINTS ON IT AND LOOKED DULL.

REACTIONS (1)
  - Withdrawal syndrome [Recovering/Resolving]

NARRATIVE: CASE EVENT DATE: 20231101
